FAERS Safety Report 10869840 (Version 3)
Quarter: 2015Q2

REPORT INFORMATION
  Report Type: Spontaneous
  Country: FR (occurrence: FR)
  Receive Date: 20150226
  Receipt Date: 20150408
  Transmission Date: 20150821
  Serious: Yes (Life-Threatening, Hospitalization, Other)
  Sender: FDA-Public Use
  Company Number: FR-JNJFOC-20150208820

PATIENT
  Age: 24 Year
  Sex: Female
  Weight: 43 kg

DRUGS (8)
  1. TARGRETIN [Concomitant]
     Active Substance: BEXAROTENE
     Indication: MYCOSIS FUNGOIDES
     Route: 065
     Dates: start: 201304
  2. ZOPHREN [Concomitant]
     Active Substance: ONDANSETRON
     Route: 042
  3. METHOTREXATE [Concomitant]
     Active Substance: METHOTREXATE
     Indication: MYCOSIS FUNGOIDES
     Route: 065
     Dates: start: 201304
  4. SOLU-MEDROL [Concomitant]
     Active Substance: METHYLPREDNISOLONE SODIUM SUCCINATE
     Indication: PREMEDICATION
     Route: 042
     Dates: start: 20140425, end: 20140425
  5. CAELYX [Suspect]
     Active Substance: DOXORUBICIN HYDROCHLORIDE
     Indication: MYCOSIS FUNGOIDES
     Route: 042
     Dates: start: 20140425, end: 20140425
  6. POLARAMIN [Concomitant]
     Active Substance: DEXCHLORPHENIRAMINE MALEATE
     Indication: PREMEDICATION
     Route: 042
     Dates: start: 20140425, end: 20140425
  7. CARMUSTINE [Concomitant]
     Active Substance: CARMUSTINE
     Indication: MYCOSIS FUNGOIDES
     Route: 065
     Dates: start: 201304
  8. INTERFERON [Concomitant]
     Active Substance: INTERFERON
     Indication: MYCOSIS FUNGOIDES
     Route: 065
     Dates: start: 201304

REACTIONS (7)
  - Infusion related reaction [Recovered/Resolved]
  - Urticaria [Recovered/Resolved]
  - Product use issue [Unknown]
  - Chest discomfort [Recovered/Resolved]
  - Anaphylactoid reaction [Recovered/Resolved]
  - Abdominal pain [Recovered/Resolved]
  - Back pain [Recovered/Resolved]

NARRATIVE: CASE EVENT DATE: 2014
